FAERS Safety Report 6316872 (Version 5)
Quarter: 2014Q2

REPORT INFORMATION
  Report Type: Spontaneous
  Country: GB (occurrence: GB)
  Receive Date: 20070521
  Receipt Date: 20140401
  Transmission Date: 20141212
  Serious: Yes (Hospitalization, Other)
  Sender: FDA-Public Use
  Company Number: GB-PFIZER INC-2007038328

PATIENT
  Sex: Male
  Weight: 4.6 kg

DRUGS (6)
  1. SPIRONOLACTONE [Suspect]
     Indication: FALLOT^S TETRALOGY
     Dosage: 0.4 MG/KG, DAILY
  2. ACETYLSALICYLIC ACID [Interacting]
     Indication: HEART DISEASE CONGENITAL
     Dosage: 5 MG/KG, DAILY
     Route: 048
  3. DIAZOXIDE [Interacting]
     Indication: HYPERINSULINISM
     Dosage: 5 MG/KG, DAILY
  4. DIAZOXIDE [Interacting]
     Dosage: 3 MG/KG, DAILY
  5. DIAZOXIDE [Interacting]
     Dosage: 1.5 MG/KG, DAILY
  6. FUROSEMIDE [Interacting]
     Indication: FALLOT^S TETRALOGY
     Dosage: 1 MG/KG, DAILY

REACTIONS (2)
  - Drug interaction [Recovered/Resolved]
  - Hyperglycaemia [Recovered/Resolved]
